FAERS Safety Report 12636916 (Version 1)
Quarter: 2016Q3

REPORT INFORMATION
  Report Type: Report from Study
  Country: US (occurrence: US)
  Receive Date: 20160809
  Receipt Date: 20160809
  Transmission Date: 20161109
  Serious: Yes (Other)
  Sender: FDA-Public Use
  Company Number: PHEH2016US019598

PATIENT
  Sex: Female

DRUGS (3)
  1. AFINITOR [Suspect]
     Active Substance: EVEROLIMUS
     Indication: BREAST CANCER METASTATIC
     Dosage: 10 MG, UNK
     Route: 048
     Dates: start: 20130504, end: 2013
  2. AFINITOR [Suspect]
     Active Substance: EVEROLIMUS
     Dosage: 10 MG, UNK
     Route: 048
  3. FEMARA [Concomitant]
     Active Substance: LETROZOLE
     Indication: BREAST CANCER METASTATIC
     Route: 065

REACTIONS (7)
  - Incision site infection [Recovered/Resolved]
  - Cognitive disorder [Unknown]
  - Depression [Unknown]
  - Fatigue [Recovered/Resolved]
  - Lymphoedema [Not Recovered/Not Resolved]
  - Impaired healing [Recovered/Resolved]
  - Stomatitis [Recovered/Resolved]
